FAERS Safety Report 16155616 (Version 1)
Quarter: 2019Q2

REPORT INFORMATION
  Report Type: Spontaneous
  Country: US (occurrence: US)
  Receive Date: 20190404
  Receipt Date: 20190404
  Transmission Date: 20190711
  Serious: No
  Sender: FDA-Public Use
  Company Number: US-TEVA-2019-US-1031226

PATIENT
  Age: 15 Year

DRUGS (5)
  1. KETOCONAZOLE. [Concomitant]
     Active Substance: KETOCONAZOLE
  2. ONEXTON [Concomitant]
     Active Substance: BENZOYL PEROXIDE\CLINDAMYCIN PHOSPHATE
     Dosage: CLINDAMYCIN PHOSPHATE/BENZOYL PEROXIDE : 1.2/3.75%, QAM
  3. ACZONE [Concomitant]
     Active Substance: DAPSONE
  4. EUCRISA [Concomitant]
     Active Substance: CRISABOROLE
  5. CLARAVIS [Suspect]
     Active Substance: ISOTRETINOIN
     Route: 065

REACTIONS (2)
  - Nausea [Unknown]
  - Decreased appetite [Unknown]

NARRATIVE: CASE EVENT DATE: 20190206
